FAERS Safety Report 6130150-3 (Version None)
Quarter: 2009Q1

REPORT INFORMATION
  Report Type: 
  Country: None (occurrence: None)
  Receive Date: 20090324
  Receipt Date: 20090316
  Transmission Date: 20090719
  Serious: Yes (Other)
  Sender: FDA-Public Use
  Company Number: AU-BRISTOL-MYERS SQUIBB COMPANY-14554422

PATIENT
  Sex: Female

DRUGS (1)
  1. ENTECAVIR [Suspect]

REACTIONS (2)
  - ABORTION INDUCED [None]
  - PREGNANCY [None]
